FAERS Safety Report 5943447-4 (Version None)
Quarter: 2008Q4

REPORT INFORMATION
  Report Type: 
  Country: None (occurrence: None)
  Receive Date: 20081106
  Receipt Date: 20081027
  Transmission Date: 20090506
  Serious: Yes (Hospitalization)
  Sender: FDA-Public Use
  Company Number: NZ-WATSON-2008-06393

PATIENT
  Age: 63 Year
  Sex: Female

DRUGS (5)
  1. OMEPRAZOLE (WATSON LABORATORIES) [Suspect]
     Indication: GASTROOESOPHAGEAL REFLUX DISEASE
     Dosage: 40 MG, DAILY
  2. CILAZAPRIL [Concomitant]
  3. HYDROCHLOROTHIAZIDE [Concomitant]
  4. FLUTICASONE PROPIONATE [Concomitant]
  5. ALBUTEROL SULFATE [Concomitant]

REACTIONS (3)
  - GRAND MAL CONVULSION [None]
  - HYPOCALCAEMIA [None]
  - HYPOMAGNESAEMIA [None]
